FAERS Safety Report 18461920 (Version 4)
Quarter: 2020Q4

REPORT INFORMATION
  Report Type: Report from Study
  Country: CA (occurrence: CA)
  Receive Date: 20201104
  Receipt Date: 20201228
  Transmission Date: 20210114
  Serious: Yes (Other)
  Sender: FDA-Public Use
  Company Number: CA-GLAXOSMITHKLINE-CA2020AMR215283

PATIENT
  Age: 16 Year
  Sex: Female
  Weight: 73.47 kg

DRUGS (6)
  1. PULMICORT TURBUHALER [Suspect]
     Active Substance: BUDESONIDE
     Indication: PRODUCT USED FOR UNKNOWN INDICATION
     Dosage: 2 PUFF(S), QID
     Dates: start: 200610, end: 200810
  2. SALBUTAMOL SULPHATE [Suspect]
     Active Substance: ALBUTEROL SULFATE
     Indication: PRODUCT USED FOR UNKNOWN INDICATION
     Dosage: 2 PUFF(S), PRN 100 MCG
     Dates: start: 200610
  3. ZENHALE [Suspect]
     Active Substance: FORMOTEROL FUMARATE\MOMETASONE FUROATE
     Indication: PRODUCT USED FOR UNKNOWN INDICATION
     Dosage: 2 PUFF(S), BID 200/5 MCG
     Route: 055
     Dates: start: 201810
  4. SYMBICORT [Suspect]
     Active Substance: BUDESONIDE\FORMOTEROL FUMARATE DIHYDRATE
     Indication: PRODUCT USED FOR UNKNOWN INDICATION
     Dosage: 2 PUFF(S) PRN
     Dates: start: 201010, end: 201810
  5. SERETIDE [Suspect]
     Active Substance: FLUTICASONE PROPIONATE\SALMETEROL XINAFOATE
     Indication: PRODUCT USED FOR UNKNOWN INDICATION
     Dosage: UNK, BID (2 INHALATION)
  6. VENTOLIN [Suspect]
     Active Substance: ALBUTEROL SULFATE
     Indication: PRODUCT USED FOR UNKNOWN INDICATION
     Dosage: 100 MCG, 2 PUFF(S) AS PER NEEDED

REACTIONS (7)
  - Dyspnoea [Recovering/Resolving]
  - Sleep disorder due to a general medical condition [Recovering/Resolving]
  - Loss of personal independence in daily activities [Unknown]
  - Eosinophil count increased [Unknown]
  - Therapeutic product effect incomplete [Not Recovered/Not Resolved]
  - Asthma [Unknown]
  - Wheezing [Unknown]

NARRATIVE: CASE EVENT DATE: 20200821
